FAERS Safety Report 14477726 (Version 1)
Quarter: 2018Q1

REPORT INFORMATION
  Report Type: Report from Study
  Country: US (occurrence: US)
  Receive Date: 20180201
  Receipt Date: 20180201
  Transmission Date: 20180509
  Serious: Yes (Other)
  Sender: FDA-Public Use
  Company Number: US-IPSEN-CABO-17010044

PATIENT
  Age: 54 Year
  Sex: Male

DRUGS (30)
  1. VITAMIN D [Concomitant]
     Active Substance: CHOLECALCIFEROL
  2. PREDNISONE. [Concomitant]
     Active Substance: PREDNISONE
  3. ADVAIR HFA [Concomitant]
     Active Substance: FLUTICASONE PROPIONATE\SALMETEROL XINAFOATE
  4. CABOMETYX [Suspect]
     Active Substance: CABOZANTINIB S-MALATE
     Indication: RENAL CANCER
     Dosage: 20 MG, QD
     Route: 048
     Dates: start: 20170721
  5. MORPHINE SULFATE. [Concomitant]
     Active Substance: MORPHINE SULFATE
  6. ATORVASTATIN CALCIUM. [Concomitant]
     Active Substance: ATORVASTATIN CALCIUM
  7. IPRATROPIUM BROMIDE. [Concomitant]
     Active Substance: IPRATROPIUM BROMIDE
  8. METOPROLOL TARTRATE. [Concomitant]
     Active Substance: METOPROLOL TARTRATE
  9. TYLENOL WITH CODEINE [Concomitant]
     Active Substance: ACETAMINOPHEN\CODEINE PHOSPHATE
  10. LASIX [Concomitant]
     Active Substance: FUROSEMIDE
  11. LIDOCAINE HCL [Concomitant]
     Active Substance: LIDOCAINE HYDROCHLORIDE
  12. OMEGA 3 [Concomitant]
     Active Substance: OMEGA-3 FATTY ACIDS
  13. MAGNESIUM [Concomitant]
     Active Substance: MAGNESIUM
  14. METFORMIN HYDROCHLORIDE. [Concomitant]
     Active Substance: METFORMIN HYDROCHLORIDE
  15. PLAVIX [Concomitant]
     Active Substance: CLOPIDOGREL BISULFATE
  16. TRAZODONE HYDROCHLORIDE. [Concomitant]
     Active Substance: TRAZODONE HYDROCHLORIDE
  17. CELEBREX [Concomitant]
     Active Substance: CELECOXIB
  18. FERROUS SULFATE. [Concomitant]
     Active Substance: FERROUS SULFATE
  19. AFINITOR [Concomitant]
     Active Substance: EVEROLIMUS
  20. CARAFATE [Concomitant]
     Active Substance: SUCRALFATE
  21. ZANTAC [Concomitant]
     Active Substance: RANITIDINE HYDROCHLORIDE
  22. NEXAVAR [Concomitant]
     Active Substance: SORAFENIB
  23. ASPIRIN. [Concomitant]
     Active Substance: ASPIRIN
  24. CEFPODOXIME PROXETIL. [Concomitant]
     Active Substance: CEFPODOXIME PROXETIL
  25. FISH OIL [Concomitant]
     Active Substance: FISH OIL
  26. PROCHLORPERAZINE MALEATE. [Concomitant]
     Active Substance: PROCHLORPERAZINE MALEATE
  27. XGEVA [Concomitant]
     Active Substance: DENOSUMAB
  28. FOLIC ACID. [Concomitant]
     Active Substance: FOLIC ACID
  29. HYDRALAZINE HCL [Concomitant]
     Active Substance: HYDRALAZINE HYDROCHLORIDE
  30. NYSTATIN. [Concomitant]
     Active Substance: NYSTATIN

REACTIONS (2)
  - Haemoglobin decreased [Unknown]
  - Somnolence [Recovered/Resolved]

NARRATIVE: CASE EVENT DATE: 20170803
